FAERS Safety Report 4332268-4 (Version None)
Quarter: 2004Q1

REPORT INFORMATION
  Report Type: 
  Country: None (occurrence: None)
  Receive Date: 20040331
  Receipt Date: 20040324
  Transmission Date: 20041129
  Serious: Yes (Hospitalization)
  Sender: FDA-Public Use
  Company Number: 2004205248FR

PATIENT
  Age: 36 Year
  Sex: Female
  Weight: 60 kg

DRUGS (2)
  1. SULFASALAZINE [Suspect]
     Dosage: 500 MG, BID, ORAL
     Route: 048
     Dates: start: 19940615
  2. ARAVA [Suspect]
     Dosage: 10 MG/DAY, ORAL
     Route: 048
     Dates: start: 20030715, end: 20040106

REACTIONS (1)
  - PULMONARY TUBERCULOSIS [None]
